FAERS Safety Report 10066566 (Version 1)
Quarter: 2014Q2

REPORT INFORMATION
  Report Type: Spontaneous
  Country: US (occurrence: None)
  Receive Date: 20140401
  Receipt Date: 20140401
  Transmission Date: 20141212
  Serious: Yes (Other)
  Sender: FDA-Public Use
  Company Number: PHEH2013US011617

PATIENT
  Age: 78 Year
  Sex: Female
  Weight: 40 kg

DRUGS (2)
  1. EXELON [Suspect]
     Dosage: (LOWER DOSE), TRANSDERMAL
     Route: 062
  2. NAMENDA (MEMANTINE HYDROCHLORIDE) [Concomitant]

REACTIONS (1)
  - Weight decreased [None]
